FAERS Safety Report 4587658-1 (Version None)
Quarter: 2005Q1

REPORT INFORMATION
  Report Type: 
  Country: None (occurrence: None)
  Receive Date: 20050125
  Receipt Date: 20040907
  Transmission Date: 20050727
  Serious: No
  Sender: FDA-Public Use
  Company Number: USA040977593

PATIENT
  Age: 84 Year
  Sex: Female

DRUGS (1)
  1. FORTEO [Suspect]
     Indication: OSTEOPOROSIS
     Dates: start: 20030711

REACTIONS (6)
  - ABDOMINAL PAIN UPPER [None]
  - ARTHRITIS [None]
  - BACK PAIN [None]
  - JOINT SWELLING [None]
  - MONARTHRITIS [None]
  - OEDEMA PERIPHERAL [None]
